FAERS Safety Report 25685942 (Version 1)
Quarter: 2025Q3

REPORT INFORMATION
  Report Type: Report from Study
  Country: US (occurrence: US)
  Receive Date: 20250815
  Receipt Date: 20250815
  Transmission Date: 20251020
  Serious: Yes (Hospitalization, Other)
  Sender: BOEHRINGER INGELHEIM
  Company Number: US-BoehringerIngelheim-2025-BI-016574

PATIENT
  Sex: Male

DRUGS (2)
  1. OFEV [Suspect]
     Active Substance: NINTEDANIB
     Indication: Idiopathic pulmonary fibrosis
     Dates: start: 20241111
  2. OFEV [Suspect]
     Active Substance: NINTEDANIB

REACTIONS (5)
  - Haemarthrosis [Unknown]
  - Liver disorder [Unknown]
  - Illness [Unknown]
  - Abdominal discomfort [Recovering/Resolving]
  - Gastrointestinal disorder [Unknown]
